FAERS Safety Report 4509227-1 (Version None)
Quarter: 2004Q4

REPORT INFORMATION
  Report Type: 
  Country: None (occurrence: None)
  Receive Date: 20041123
  Receipt Date: 20000621
  Transmission Date: 20050328
  Serious: Yes (Life-Threatening, Hospitalization, Disabling)
  Sender: FDA-Public Use
  Company Number: US-MERCK-00062481

PATIENT
  Age: 78 Year
  Sex: Male

DRUGS (8)
  1. VIOXX [Suspect]
     Indication: BACK PAIN
     Route: 048
     Dates: start: 19991101
  2. VIOXX [Suspect]
     Indication: PAIN IN EXTREMITY
     Route: 048
     Dates: start: 19991101
  3. LASIX [Concomitant]
     Route: 065
  4. LOTENSIN [Concomitant]
     Route: 065
  5. COREG [Concomitant]
     Route: 065
  6. ALDACTONE [Concomitant]
     Route: 065
  7. PRAVACHOL [Concomitant]
     Route: 065
  8. LANOXIN [Concomitant]
     Route: 065

REACTIONS (5)
  - CARDIAC FAILURE CONGESTIVE [None]
  - CEREBROVASCULAR ACCIDENT [None]
  - FLUID RETENTION [None]
  - OEDEMA PERIPHERAL [None]
  - SWELLING FACE [None]
